FAERS Safety Report 9400473 (Version 1)
Quarter: 2013Q3

REPORT INFORMATION
  Report Type: Spontaneous
  Country: US (occurrence: US)
  Receive Date: 20130715
  Receipt Date: 20130715
  Transmission Date: 20140515
  Serious: Yes (Hospitalization, Other)
  Sender: FDA-Public Use
  Company Number: US-009507513-1307USA005608

PATIENT
  Age: 13 Year
  Sex: Male
  Weight: 52.15 kg

DRUGS (1)
  1. SAPHRIS [Suspect]
     Indication: BIPOLAR I DISORDER
     Dosage: 10 MG, BID
     Route: 048

REACTIONS (5)
  - Suicidal ideation [Unknown]
  - Aggression [Unknown]
  - Agitation [Unknown]
  - Affective disorder [Unknown]
  - Unevaluable event [Unknown]
